FAERS Safety Report 18143128 (Version 3)
Quarter: 2023Q4

REPORT INFORMATION
  Report Type: Spontaneous
  Country: US (occurrence: US)
  Receive Date: 20200812
  Receipt Date: 20231222
  Transmission Date: 20240109
  Serious: Yes (Hospitalization, Other)
  Sender: FDA-Public Use
  Company Number: US-JAZZ-2020-US-009997

PATIENT
  Age: 30 Year
  Sex: Female

DRUGS (2)
  1. XYREM [Suspect]
     Active Substance: SODIUM OXYBATE
     Indication: Narcolepsy
     Dosage: UNKNOWN DOSE AND UNKNOWN FREQUENCY
     Route: 048
  2. ALCOHOL [Suspect]
     Active Substance: ALCOHOL
     Indication: Product used for unknown indication

REACTIONS (8)
  - Electrocardiogram QRS complex prolonged [Recovered/Resolved]
  - Electrocardiogram QT prolonged [Recovered/Resolved]
  - Tachycardia [Recovered/Resolved]
  - Depressed level of consciousness [Recovered/Resolved]
  - Agitation [Recovered/Resolved]
  - Wrong technique in product usage process [Unknown]
  - Intentional product use issue [Unknown]
  - Anaemia [Unknown]

NARRATIVE: CASE EVENT DATE: 20200701
